FAERS Safety Report 23898160 (Version 1)
Quarter: 2024Q2

REPORT INFORMATION
  Report Type: Spontaneous
  Country: FR (occurrence: FR)
  Receive Date: 20240524
  Receipt Date: 20240524
  Transmission Date: 20240716
  Serious: Yes (Other)
  Sender: FDA-Public Use
  Company Number: None

PATIENT
  Age: 32 Year
  Sex: Male
  Weight: 53 kg

DRUGS (2)
  1. DYMISTA [Suspect]
     Active Substance: AZELASTINE HYDROCHLORIDE\FLUTICASONE PROPIONATE
     Indication: Nasal polyps
     Dosage: 2 DOSAGE FORM, QD
     Route: 045
     Dates: start: 20240206, end: 20240417
  2. PREDNISONE [Suspect]
     Active Substance: PREDNISONE
     Indication: Nasal polyps
     Dosage: UNK
     Route: 048
     Dates: start: 20240206, end: 20240213

REACTIONS (4)
  - Hypersomnia [Recovering/Resolving]
  - Disturbance in attention [Recovered/Resolved]
  - Anhedonia [Recovered/Resolved]
  - Asthenia [Recovered/Resolved]

NARRATIVE: CASE EVENT DATE: 20240206
